FAERS Safety Report 17886499 (Version 1)
Quarter: 2020Q2

REPORT INFORMATION
  Report Type: Spontaneous
  Country: US (occurrence: US)
  Receive Date: 20200611
  Receipt Date: 20200611
  Transmission Date: 20200714
  Serious: No
  Sender: FDA-Public Use
  Company Number: US-GUERBET-US-20200075

PATIENT
  Age: 2 Day

DRUGS (1)
  1. OPTIRAY [Suspect]
     Active Substance: IOVERSOL
     Indication: FOETAL EXPOSURE DURING PREGNANCY

REACTIONS (2)
  - Foetal exposure during pregnancy [Unknown]
  - Abdominal distension [Unknown]
